FAERS Safety Report 14562634 (Version 6)
Quarter: 2020Q4

REPORT INFORMATION
  Report Type: Report from Study
  Country: DE (occurrence: DE)
  Receive Date: 20180222
  Receipt Date: 20201028
  Transmission Date: 20210113
  Serious: Yes (Death, Hospitalization, Other)
  Sender: FDA-Public Use
  Company Number: DE-BRISTOL-MYERS SQUIBB COMPANY-BMS-2017-121021

PATIENT
  Age: 58 Year
  Sex: Male
  Weight: 108 kg

DRUGS (16)
  1. NIVOLUMAB [Suspect]
     Active Substance: NIVOLUMAB
     Dosage: 1 DF, Q3WK
     Route: 042
     Dates: start: 20170816
  2. OMEPRAZOLE. [Concomitant]
     Active Substance: OMEPRAZOLE
     Indication: PRODUCT USED FOR UNKNOWN INDICATION
     Dosage: 20 MG, QD
     Route: 048
     Dates: start: 20170914
  3. IPILIMUMAB [Suspect]
     Active Substance: IPILIMUMAB
     Dosage: 1 DF, Q3WK
     Route: 042
     Dates: start: 20170906, end: 20170906
  4. HYDROCORTISON [HYDROCORTISONE ACETATE] [Concomitant]
     Dosage: 30 MG, QD
     Route: 048
     Dates: start: 20171102, end: 20171104
  5. PANTOPRAZOLE [Concomitant]
     Active Substance: PANTOPRAZOLE
     Dosage: 40 MG, QD
     Route: 048
     Dates: start: 20171104, end: 20171112
  6. GENTAMICIN. [Concomitant]
     Active Substance: GENTAMICIN
     Indication: PRODUCT USED FOR UNKNOWN INDICATION
     Dosage: 5 MG, QD
     Route: 031
     Dates: start: 20171101, end: 20171104
  7. IPILIMUMAB [Suspect]
     Active Substance: IPILIMUMAB
     Indication: METASTASES TO LUNG
     Dosage: 1 DF, Q3WK
     Route: 042
     Dates: start: 20170816, end: 20170816
  8. SODIUM CHLORIDE. [Concomitant]
     Active Substance: SODIUM CHLORIDE
     Indication: HYPONATRAEMIA
     Dosage: 1000 MG, QD
     Route: 048
     Dates: start: 20170907, end: 20171102
  9. HYDROCORTISON [HYDROCORTISONE ACETATE] [Concomitant]
     Dosage: 30 MG, QD
     Route: 048
     Dates: start: 20171121
  10. DEXA GENTAMICIN [DEXAMETHASONE SODIUM PHOSPHATE;GENTAMICIN SULFATE] [Concomitant]
     Indication: PRODUCT USED FOR UNKNOWN INDICATION
     Dosage: 1 DF, QD
     Route: 047
     Dates: start: 20171101, end: 20171104
  11. DEXAMETHASONE. [Concomitant]
     Active Substance: DEXAMETHASONE
     Indication: PRODUCT USED FOR UNKNOWN INDICATION
     Dosage: 1 MG, UNK
     Route: 031
     Dates: start: 20171101, end: 20171104
  12. NIVOLUMAB [Suspect]
     Active Substance: NIVOLUMAB
     Dosage: 1 DF, Q3WK
     Route: 065
     Dates: start: 20170906
  13. HYDROCORTISON [HYDROCORTISONE ACETATE] [Concomitant]
     Indication: PRODUCT USED FOR UNKNOWN INDICATION
     Dosage: 10 MG, QD
     Route: 048
     Dates: start: 20171101, end: 20171101
  14. PANTOPRAZOLE [Concomitant]
     Active Substance: PANTOPRAZOLE
     Indication: PRODUCT USED FOR UNKNOWN INDICATION
     Dosage: 20 MG, QD
     Route: 048
     Dates: start: 20171101, end: 20171103
  15. NIVOLUMAB [Suspect]
     Active Substance: NIVOLUMAB
     Indication: METASTASES TO LUNG
     Dosage: 1 DF, Q2WK
     Route: 065
     Dates: start: 20161014, end: 20170723
  16. PANTOPRAZOLE [Concomitant]
     Active Substance: PANTOPRAZOLE
     Dosage: 20 MG, QD
     Route: 048
     Dates: start: 20171115

REACTIONS (4)
  - Lung cancer metastatic [Fatal]
  - Conjunctivitis [Recovered/Resolved]
  - Hypophysitis [Recovered/Resolved with Sequelae]
  - Leukopenia [Recovered/Resolved]

NARRATIVE: CASE EVENT DATE: 20170905
